FAERS Safety Report 20014101 (Version 2)
Quarter: 2021Q4

REPORT INFORMATION
  Report Type: Spontaneous
  Country: DE (occurrence: DE)
  Receive Date: 20211029
  Receipt Date: 20211110
  Transmission Date: 20220303
  Serious: Yes (Death, Other)
  Sender: FDA-Public Use
  Company Number: DE-BRISTOL-MYERS SQUIBB COMPANY-BMS-2021-112845

PATIENT

DRUGS (3)
  1. NIVOLUMAB [Suspect]
     Active Substance: NIVOLUMAB
     Indication: Product used for unknown indication
     Dosage: UNAVAILABLE
     Route: 065
  2. IPILIMUMAB [Suspect]
     Active Substance: IPILIMUMAB
     Indication: Product used for unknown indication
     Route: 065
  3. RELATLIMAB [Concomitant]
     Active Substance: RELATLIMAB
     Indication: Product used for unknown indication
     Route: 065

REACTIONS (13)
  - Pneumonitis [Fatal]
  - Haemophagocytic lymphohistiocytosis [Fatal]
  - Acute pulmonary oedema [Fatal]
  - Sepsis [Fatal]
  - Myocarditis [Fatal]
  - Pneumonia [Fatal]
  - Hypothyroidism [Unknown]
  - Pruritus [Unknown]
  - Fatigue [Unknown]
  - Rash [Unknown]
  - Arthralgia [Unknown]
  - Diarrhoea [Unknown]
  - Vitiligo [Unknown]
